FAERS Safety Report 23782544 (Version 2)
Quarter: 2024Q2

REPORT INFORMATION
  Report Type: Spontaneous
  Country: JP (occurrence: JP)
  Receive Date: 20240425
  Receipt Date: 20240522
  Transmission Date: 20240715
  Serious: Yes (Other)
  Sender: FDA-Public Use
  Company Number: JP-CHUGAI-2024013431AA

PATIENT
  Age: 72 Year
  Sex: Female

DRUGS (16)
  1. ROZLYTREK [Suspect]
     Active Substance: ENTRECTINIB
     Indication: Non-small cell lung cancer
     Dosage: 600 MILLIGRAM, QD
     Route: 065
     Dates: start: 20240411
  2. ROZLYTREK [Suspect]
     Active Substance: ENTRECTINIB
     Route: 065
     Dates: start: 20240417, end: 20240424
  3. ROZLYTREK [Suspect]
     Active Substance: ENTRECTINIB
     Route: 065
     Dates: start: 20240425
  4. ESAXERENONE [Suspect]
     Active Substance: ESAXERENONE
     Indication: Product used for unknown indication
     Dosage: 1.25 MILLIGRAM, QD, AFTER BREAKFAST
     Route: 065
  5. AMLODIPINE BESYLATE [Concomitant]
     Active Substance: AMLODIPINE BESYLATE
     Dosage: 2.5 MILLIGRAM, QD, AFTER BREAKFAST
  6. ENTRESTO [Concomitant]
     Active Substance: SACUBITRIL\VALSARTAN
     Dosage: 200 MILLIGRAM, QD, AFTER BREAKFAST
  7. LASIX [Concomitant]
     Active Substance: FUROSEMIDE
     Dosage: 20 MILLIGRAM, QD, AFTER BREAKFAST
  8. EZETIMIBE [Concomitant]
     Active Substance: EZETIMIBE
     Dosage: 10 MILLIGRAM, QD, AFTER BREAKFAST
  9. ATORVASTATIN [Concomitant]
     Active Substance: ATORVASTATIN
     Dosage: 5 MILLIGRAM, QD, AFTER BREAKFAST
  10. LANSOPRAZOLE [Concomitant]
     Active Substance: LANSOPRAZOLE
     Dosage: 15 MILLIGRAM, QD, AFTER BREAKFAST
  11. LOXOPROFEN SODIUM [Concomitant]
     Active Substance: LOXOPROFEN SODIUM
     Dosage: 60 MILLIGRAM, TID, AFTER BREAKFAST, LUNCH, AND DINNER
  12. REBAMIPIDE [Concomitant]
     Active Substance: REBAMIPIDE
     Dosage: 100 MILLIGRAM, TID, AFTER BREAKFAST, LUNCH, AND DINNER
  13. MIROGABALIN BESYLATE [Concomitant]
     Active Substance: MIROGABALIN BESYLATE
     Dosage: 2.5 MILLIGRAM, BID, AFTER BREAKFAST AND DINNER
  14. MAGNESIUM OXIDE [Concomitant]
     Active Substance: MAGNESIUM OXIDE
     Indication: Constipation
     Dosage: AT A DOSE OF ONE TO TWO TABLETS WHEN FAECES HARD
  15. CELECOXIB [Concomitant]
     Active Substance: CELECOXIB
     Dosage: 2 DOSAGE FORM, BID
  16. ACETAMINOPHEN\TRAMADOL HYDROCHLORIDE [Concomitant]
     Active Substance: ACETAMINOPHEN\TRAMADOL HYDROCHLORIDE

REACTIONS (1)
  - Renal disorder [Recovering/Resolving]

NARRATIVE: CASE EVENT DATE: 20240415
